FAERS Safety Report 20565119 (Version 1)
Quarter: 2022Q1

REPORT INFORMATION
  Report Type: Other
  Country: US (occurrence: US)
  Receive Date: 20220308
  Receipt Date: 20220308
  Transmission Date: 20220423
  Serious: Yes (Hospitalization, Other)
  Sender: FDA-Public Use
  Company Number: US-DEXPHARM-20220213

PATIENT
  Age: 36 Year
  Sex: Male

DRUGS (3)
  1. VENLAFAXINE [Interacting]
     Active Substance: VENLAFAXINE HYDROCHLORIDE
  2. QUETIAPINE [Interacting]
     Active Substance: QUETIAPINE
  3. HERBALS\MITRAGYNINE [Interacting]
     Active Substance: HERBALS\MITRAGYNINE
     Dosage: BEGAN USING KRATOM 11 YEARS AGO AND INCREASED HIS TOTAL DAILY KRATOM CONSUMPTION TO APPROXIMATELY...

REACTIONS (4)
  - Dizziness [Recovered/Resolved]
  - Electrocardiogram QT prolonged [Recovered/Resolved]
  - Drug interaction [Recovered/Resolved]
  - Serotonin syndrome [Recovered/Resolved]
